FAERS Safety Report 4569105-9 (Version None)
Quarter: 2005Q1

REPORT INFORMATION
  Report Type: 
  Country: None (occurrence: None)
  Receive Date: 20050201
  Receipt Date: 20050124
  Transmission Date: 20050727
  Serious: Yes (Death)
  Sender: FDA-Public Use
  Company Number: 2005UW01312

PATIENT
  Sex: Female

DRUGS (2)
  1. SEROQUEL [Suspect]
  2. BUSPAR [Suspect]

REACTIONS (1)
  - OVERDOSE [None]
